FAERS Safety Report 9191199 (Version 2)
Quarter: 2013Q2

REPORT INFORMATION
  Report Type: Spontaneous
  Country: GB (occurrence: GB)
  Receive Date: 20130326
  Receipt Date: 20130429
  Transmission Date: 20140414
  Serious: Yes (Disabling, Other)
  Sender: FDA-Public Use
  Company Number: GB-ROCHE-1206166

PATIENT
  Age: 89 Year
  Sex: Female

DRUGS (3)
  1. LUCENTIS [Suspect]
     Indication: AGE-RELATED MACULAR DEGENERATION
     Route: 050
     Dates: start: 20080306
  2. ATENOLOL [Concomitant]
     Route: 065
     Dates: start: 20041205
  3. ASPIRIN [Concomitant]

REACTIONS (3)
  - Spinal compression fracture [Recovered/Resolved]
  - Fall [Unknown]
  - Osteoporosis [Unknown]
